FAERS Safety Report 16260202 (Version 1)
Quarter: 2019Q2

REPORT INFORMATION
  Report Type: Spontaneous
  Country: US (occurrence: US)
  Receive Date: 20190501
  Receipt Date: 20190501
  Transmission Date: 20190711
  Serious: Yes (Hospitalization)
  Sender: FDA-Public Use
  Company Number: US-PERRIGO-19US005117

PATIENT
  Age: 33 Year
  Sex: Male

DRUGS (1)
  1. LOPERAMIDE HYDROCHLORIDE. [Suspect]
     Active Substance: LOPERAMIDE HYDROCHLORIDE
     Indication: PAIN
     Dosage: GREATER THAN 100 MG, DAILY
     Route: 048

REACTIONS (3)
  - Cardiac arrest [Recovered/Resolved]
  - Drug abuse [Recovered/Resolved]
  - Torsade de pointes [Recovered/Resolved]
